FAERS Safety Report 7932210-0 (Version None)
Quarter: 2011Q4

REPORT INFORMATION
  Report Type: 
  Country: None (occurrence: None)
  Receive Date: 20111121
  Receipt Date: 20111111
  Transmission Date: 20120403
  Serious: Yes (Other)
  Sender: FDA-Public Use
  Company Number: US-ELI_LILLY_AND_COMPANY-US201111003917

PATIENT
  Sex: Female

DRUGS (3)
  1. BYETTA [Suspect]
     Dosage: 5 UG, BID
     Route: 058
     Dates: start: 20111027
  2. BYETTA [Suspect]
     Indication: TYPE 2 DIABETES MELLITUS
     Dosage: 5 UG, BID
     Route: 058
     Dates: start: 20060101, end: 20070101
  3. METFORMIN HCL [Concomitant]
     Indication: DIABETES MELLITUS

REACTIONS (3)
  - CHOLELITHIASIS [None]
  - NAUSEA [None]
  - BLOOD GLUCOSE INCREASED [None]
